FAERS Safety Report 5280717-X (Version None)
Quarter: 2007Q1

REPORT INFORMATION
  Report Type: 
  Country: None (occurrence: None)
  Receive Date: 20070329
  Receipt Date: 20070319
  Transmission Date: 20070707
  Serious: Yes (Other)
  Sender: FDA-Public Use
  Company Number: DE-ABBOTT-07P-062-0362541-00

PATIENT
  Age: 12 Year
  Sex: Male

DRUGS (1)
  1. VALPROIC ACID [Suspect]
     Indication: TEMPORAL LOBE EPILEPSY
     Route: 065

REACTIONS (2)
  - PANCREATIC NECROSIS [None]
  - PANCREATITIS ACUTE [None]
